FAERS Safety Report 8034575-0 (Version None)
Quarter: 2012Q1

REPORT INFORMATION
  Report Type: 
  Country: None (occurrence: None)
  Receive Date: 20120110
  Receipt Date: 20111228
  Transmission Date: 20120608
  Serious: Yes (Death)
  Sender: FDA-Public Use
  Company Number: US-PFIZER INC-US-WYE-H02028808

PATIENT
  Age: 52 Year
  Sex: Male

DRUGS (7)
  1. OXAZEPAM [Suspect]
     Dosage: UNK
     Route: 048
     Dates: start: 20060101, end: 20060101
  2. IBUPROFEN [Suspect]
     Dosage: UNK
     Route: 048
     Dates: start: 20060101, end: 20060101
  3. PROPAFENONE [Suspect]
     Dosage: UNK
     Route: 048
     Dates: start: 20060101, end: 20060101
  4. ACETAMINOPHEN [Suspect]
     Dosage: UNK
     Route: 048
     Dates: start: 20060101, end: 20060101
  5. TEMAZEPAM [Suspect]
     Dosage: UNK
     Route: 048
     Dates: start: 20060101, end: 20060101
  6. CARVEDILOL [Suspect]
     Dosage: UNK
     Route: 048
     Dates: start: 20060101, end: 20060101
  7. WARFARIN SODIUM [Suspect]
     Dosage: UNK
     Route: 048
     Dates: start: 20060101, end: 20060101

REACTIONS (1)
  - INTENTIONAL OVERDOSE [None]
